FAERS Safety Report 12050340 (Version 1)
Quarter: 2016Q1

REPORT INFORMATION
  Report Type: Spontaneous
  Country: PL (occurrence: PL)
  Receive Date: 20160209
  Receipt Date: 20160209
  Transmission Date: 20160526
  Serious: Yes (Life-Threatening, Hospitalization)
  Sender: FDA-Public Use
  Company Number: PL-ROCHE-1707988

PATIENT
  Age: 76 Year
  Sex: Female
  Weight: 76 kg

DRUGS (3)
  1. AUGMENTIN [Concomitant]
     Active Substance: AMOXICILLIN\CLAVULANATE POTASSIUM
     Indication: PRODUCT USED FOR UNKNOWN INDICATION
     Route: 065
     Dates: start: 20150925, end: 20151008
  2. ACTILYSE [Suspect]
     Active Substance: ALTEPLASE
     Indication: CEREBROVASCULAR ACCIDENT
     Route: 042
     Dates: start: 20150924, end: 20150925
  3. CORATOR [Concomitant]
     Indication: PRODUCT USED FOR UNKNOWN INDICATION
     Route: 065
     Dates: start: 20150925, end: 20151002

REACTIONS (4)
  - Hepatic enzyme increased [Unknown]
  - Altered state of consciousness [Unknown]
  - Hepatotoxicity [Unknown]
  - Yellow skin [Unknown]

NARRATIVE: CASE EVENT DATE: 20150927
